FAERS Safety Report 8166817-5 (Version None)
Quarter: 2012Q1

REPORT INFORMATION
  Report Type: 
  Country: None (occurrence: None)
  Receive Date: 20120227
  Receipt Date: 20120223
  Transmission Date: 20120608
  Serious: Yes (Hospitalization, Other)
  Sender: FDA-Public Use
  Company Number: DE-ABBOTT-12P-062-0901700-00

PATIENT
  Sex: Male
  Weight: 84 kg

DRUGS (8)
  1. HUMIRA [Suspect]
     Indication: RHEUMATOID ARTHRITIS
     Route: 058
     Dates: start: 20041001, end: 20110414
  2. METFORMIN HYDROCHLORIDE [Concomitant]
     Indication: PRODUCT USED FOR UNKNOWN INDICATION
  3. AMARYL [Concomitant]
     Indication: PRODUCT USED FOR UNKNOWN INDICATION
  4. TORSEMIDE [Concomitant]
     Indication: PRODUCT USED FOR UNKNOWN INDICATION
  5. LASIX [Concomitant]
     Indication: PRODUCT USED FOR UNKNOWN INDICATION
  6. PANTOPRAZOLE [Concomitant]
     Indication: PRODUCT USED FOR UNKNOWN INDICATION
  7. RAMIPRIL [Concomitant]
     Indication: PRODUCT USED FOR UNKNOWN INDICATION
  8. VOLTAREN RES. [Concomitant]
     Indication: PRODUCT USED FOR UNKNOWN INDICATION

REACTIONS (16)
  - PURULENT DISCHARGE [None]
  - OEDEMA PERIPHERAL [None]
  - OSTEOMYELITIS [None]
  - FINGER AMPUTATION [None]
  - BURSITIS [None]
  - LOCALISED INFECTION [None]
  - FISTULA [None]
  - WOUND DEHISCENCE [None]
  - POSTOPERATIVE WOUND INFECTION [None]
  - IMPAIRED HEALING [None]
  - JOINT DESTRUCTION [None]
  - STAPHYLOCOCCAL OSTEOMYELITIS [None]
  - SKIN ULCER [None]
  - PLEURAL EFFUSION [None]
  - DIABETIC FOOT [None]
  - SECRETION DISCHARGE [None]
